FAERS Safety Report 4531965-5 (Version None)
Quarter: 2004Q4

REPORT INFORMATION
  Report Type: 
  Country: None (occurrence: None)
  Receive Date: 20041217
  Receipt Date: 20041202
  Transmission Date: 20050328
  Serious: Yes (Life-Threatening, Hospitalization)
  Sender: FDA-Public Use
  Company Number: 2004-BP-07053YA

PATIENT
  Age: 69 Year
  Sex: Male

DRUGS (3)
  1. HARNAL (TAMSULOSIN) [Suspect]
     Indication: BENIGN PROSTATIC HYPERPLASIA
     Dosage: 0.2 MG (0.2 MG QD), PO
     Route: 048
     Dates: start: 20040601, end: 20040807
  2. CLECORUC (CHLORMADINONE ACETATE) [Suspect]
     Indication: BENIGN PROSTATIC HYPERPLASIA
     Dosage: 50 MG (25 MG BID), PO
     Route: 048
     Dates: start: 20040601, end: 20040807
  3. TAKAVENSU (MELILOT() [Suspect]
     Indication: HAEMORRHOIDS
     Dosage: SEE TEXT (2 DF TID), PO
     Route: 048
     Dates: start: 20040101, end: 20040807

REACTIONS (2)
  - HAEMORRHOIDS [None]
  - HEPATOCELLULAR DAMAGE [None]
